FAERS Safety Report 7420833-7 (Version None)
Quarter: 2011Q2

REPORT INFORMATION
  Report Type: 
  Country: None (occurrence: None)
  Receive Date: 20110418
  Receipt Date: 20110407
  Transmission Date: 20111010
  Serious: Yes (Hospitalization)
  Sender: FDA-Public Use
  Company Number: CA-ROCHE-770163

PATIENT
  Sex: Female

DRUGS (10)
  1. SYMBICORT [Concomitant]
  2. CORTISONE [Concomitant]
  3. PLAQUENIL [Concomitant]
  4. CRESTOR [Concomitant]
  5. ATIVAN [Concomitant]
  6. TOCILIZUMAB [Suspect]
     Indication: RHEUMATOID ARTHRITIS
     Route: 042
     Dates: start: 20101201
  7. ASPIRIN [Concomitant]
  8. NEXIUM [Concomitant]
  9. FUROSEMIDE [Concomitant]
  10. ALENDRONATE SODIUM [Concomitant]
     Dosage: DRUG REPORTED AS ALENDRONATE

REACTIONS (2)
  - ACUTE PULMONARY OEDEMA [None]
  - ECCHYMOSIS [None]
